FAERS Safety Report 7628511-6 (Version None)
Quarter: 2011Q3

REPORT INFORMATION
  Report Type: 
  Country: None (occurrence: None)
  Receive Date: 20110722
  Receipt Date: 20110714
  Transmission Date: 20111222
  Serious: Yes (Other)
  Sender: FDA-Public Use
  Company Number: SI-AMGEN-SVNSP2011030989

PATIENT
  Age: 62 Year
  Sex: Female
  Weight: 53 kg

DRUGS (7)
  1. ENBREL [Suspect]
     Dosage: UNK
     Dates: start: 20110304
  2. MEDROL [Suspect]
     Indication: RHEUMATOID ARTHRITIS
     Dosage: 4 MG, 1X/DAY
  3. CALCIUM CARBONATE [Concomitant]
     Dosage: 1 G, 1X/DAY
  4. ROCALTROL [Concomitant]
     Dosage: 0.25 MG, 1X/DAY
     Route: 048
  5. MELOXICAM [Concomitant]
     Dosage: 15 MG, 1X/DAY
     Route: 048
  6. ENBREL [Suspect]
     Indication: RHEUMATOID ARTHRITIS
     Dosage: 50 MG, WEEKLY
     Route: 058
     Dates: start: 20090929
  7. ALENDRONIC ACID [Concomitant]
     Dosage: 70 MG, WEEKLY
     Route: 048

REACTIONS (4)
  - BLOOD DISORDER [None]
  - NEPHROLITHIASIS [None]
  - THROMBOCYTOPENIA [None]
  - URINARY TRACT INFECTION [None]
